FAERS Safety Report 12776582 (Version 1)
Quarter: 2016Q3

REPORT INFORMATION
  Report Type: Spontaneous
  Country: GB (occurrence: GB)
  Receive Date: 20160923
  Receipt Date: 20160923
  Transmission Date: 20161109
  Serious: Yes (Life-Threatening, Hospitalization, Disabling)
  Sender: FDA-Public Use
  Company Number: GB-MYLANLABS-2016M1039727

PATIENT

DRUGS (5)
  1. ASACOL [Suspect]
     Active Substance: MESALAMINE
     Indication: COLITIS ULCERATIVE
     Dosage: 2.4-4.8G/DAY (DIVIDED DOSES)
     Route: 048
     Dates: start: 20130404, end: 20151028
  2. AZATHIOPRINE. [Suspect]
     Active Substance: AZATHIOPRINE
     Indication: COLITIS ULCERATIVE
     Dosage: 100 MG, UNK
     Route: 048
     Dates: start: 20130404, end: 20130606
  3. 6-MERCAPTOPURINE MONOHYDRATE [Suspect]
     Active Substance: MERCAPTOPURINE
     Indication: COLITIS ULCERATIVE
     Dosage: 100 MG, UNK
     Route: 048
     Dates: start: 20130701, end: 20160101
  4. GOLIMUMAB [Suspect]
     Active Substance: GOLIMUMAB
     Indication: COLITIS ULCERATIVE
     Dosage: 50 MG, UNK
     Route: 058
     Dates: start: 20150201, end: 20150925
  5. REMSIMA [Suspect]
     Active Substance: INFLIXIMAB
     Indication: COLITIS ULCERATIVE
     Dosage: 5 MG/KG, UNK
     Route: 042
     Dates: start: 20151030, end: 20151215

REACTIONS (7)
  - Gingival bleeding [Unknown]
  - Fatigue [Unknown]
  - Acute monocytic leukaemia [Not Recovered/Not Resolved]
  - Neutropenia [Unknown]
  - Night sweats [Unknown]
  - Rash [Unknown]
  - Drug ineffective [Unknown]

NARRATIVE: CASE EVENT DATE: 20160602
